FAERS Safety Report 8370441-9 (Version None)
Quarter: 2012Q2

REPORT INFORMATION
  Report Type: 
  Country: None (occurrence: None)
  Receive Date: 20120517
  Receipt Date: 20120508
  Transmission Date: 20120825
  Serious: Yes (Other)
  Sender: FDA-Public Use
  Company Number: ADR-2009-7621

PATIENT
  Sex: Female

DRUGS (2)
  1. LIORESAL [Suspect]
     Indication: MULTIPLE SCLEROSIS
     Dosage: SEE B5 MCG, DAILY, INTR
     Route: 037
  2. LIORESAL [Suspect]
     Indication: MUSCLE SPASTICITY
     Dosage: SEE B5 MCG, DAILY, INTR
     Route: 037

REACTIONS (7)
  - DEVICE MALFUNCTION [None]
  - CONDITION AGGRAVATED [None]
  - DEVICE DISLOCATION [None]
  - DISEASE PROGRESSION [None]
  - MUSCLE SPASTICITY [None]
  - PAIN [None]
  - DEVICE KINK [None]
